FAERS Safety Report 7073377-9 (Version None)
Quarter: 2010Q4

REPORT INFORMATION
  Report Type: 
  Country: None (occurrence: None)
  Receive Date: 20101029
  Receipt Date: 20101016
  Transmission Date: 20110411
  Serious: No
  Sender: FDA-Public Use
  Company Number: JP-ELI_LILLY_AND_COMPANY-JP201009006844

PATIENT
  Sex: Male
  Weight: 90 kg

DRUGS (14)
  1. CYMBALTA [Suspect]
     Indication: DEPRESSION
     Dosage: 20 MG, DAILY (1/D)
     Route: 048
     Dates: start: 20100604, end: 20100708
  2. CYMBALTA [Suspect]
     Dosage: 30 MG, DAILY (1/D)
     Route: 048
     Dates: start: 20100709, end: 20100820
  3. CYMBALTA [Suspect]
     Dosage: 40 MG, DAILY (1/D)
     Route: 048
     Dates: start: 20100821, end: 20100827
  4. CYMBALTA [Suspect]
     Dosage: 30 MG, DAILY (1/D)
     Route: 048
     Dates: start: 20100828, end: 20100916
  5. CYMBALTA [Suspect]
     Dosage: 20 MG, DAILY (1/D)
     Route: 048
     Dates: start: 20100917, end: 20100924
  6. LEXOTAN [Concomitant]
     Indication: ANXIETY
     Dosage: 2 MG, 2/D
     Route: 048
     Dates: start: 20100517
  7. PAXIL [Concomitant]
     Indication: DEPRESSION
     Dates: end: 20100603
  8. PAXIL [Concomitant]
     Dosage: 5 MG, DAILY (1/D)
     Dates: start: 20100604, end: 20100618
  9. RESLIN [Concomitant]
     Indication: INSOMNIA
     Dosage: 25 MG, 4/D
     Route: 048
     Dates: start: 20100604, end: 20100715
  10. RESLIN [Concomitant]
     Dosage: 25 MG, 3/D
     Route: 048
     Dates: start: 20100716
  11. ROHYPNOL [Concomitant]
     Indication: INSOMNIA
     Dosage: 2 MG, 2/D
     Route: 048
     Dates: start: 20100112
  12. HIRNAMIN [Concomitant]
     Indication: INSOMNIA
     Dosage: 5 MG, DAILY (1/D)
     Dates: start: 20100604, end: 20100723
  13. MYSLEE [Concomitant]
     Indication: INSOMNIA
     Dosage: 10 MG, DAILY (1/D)
     Dates: start: 20100323, end: 20100708
  14. RISUMIC [Concomitant]
     Indication: HYPOTENSION
     Dosage: 10 MG, 2/D
     Route: 048
     Dates: start: 20100911

REACTIONS (1)
  - LOSS OF CONSCIOUSNESS [None]
